FAERS Safety Report 9159717 (Version 1)
Quarter: 2013Q1

REPORT INFORMATION
  Report Type: Spontaneous
  Country: JP (occurrence: JP)
  Receive Date: 20130313
  Receipt Date: 20130313
  Transmission Date: 20140127
  Serious: Yes (Death)
  Sender: FDA-Public Use
  Company Number: JP-ELI_LILLY_AND_COMPANY-JP201303001614

PATIENT
  Age: 85 Year
  Sex: Female

DRUGS (3)
  1. FORTEO [Suspect]
     Indication: OSTEOPOROSIS
     Dosage: 20 UG, QD
     Route: 058
     Dates: start: 20130109
  2. RESTAMIN [Concomitant]
     Dosage: UNK
     Route: 065
     Dates: start: 20130206
  3. ALLELOCK [Concomitant]
     Route: 065

REACTIONS (1)
  - Acute myocardial infarction [Fatal]
